FAERS Safety Report 23244890 (Version 4)
Quarter: 2023Q4

REPORT INFORMATION
  Report Type: Spontaneous
  Country: CH (occurrence: CH)
  Receive Date: 20231130
  Receipt Date: 20231204
  Transmission Date: 20240110
  Serious: Yes (Hospitalization, Other)
  Sender: FDA-Public Use
  Company Number: CH-MLMSERVICE-20231106-4643441-1

PATIENT
  Age: 54 Year
  Sex: Male

DRUGS (2)
  1. LIDOCAINE [Suspect]
     Active Substance: LIDOCAINE
     Indication: Anaesthesia eye
     Dosage: ONE INTRACAMERAL INJECTION OF 0.5% LIDOCAINE
     Route: 031
  2. CEFUROXIME SODIUM [Suspect]
     Active Substance: CEFUROXIME SODIUM
     Indication: Antibiotic therapy
     Dosage: 1 MG/0.1ML; ONE INJECTION
     Route: 031

REACTIONS (8)
  - Retinal degeneration [Recovering/Resolving]
  - Blindness [Recovering/Resolving]
  - Retinopathy [Recovering/Resolving]
  - Photopsia [Recovering/Resolving]
  - Vitreous floaters [Recovering/Resolving]
  - Anterior chamber inflammation [Recovering/Resolving]
  - Anterior chamber flare [Recovering/Resolving]
  - Toxicity to various agents [Recovering/Resolving]

NARRATIVE: CASE EVENT DATE: 20220101
